FAERS Safety Report 8384233-8 (Version None)
Quarter: 2012Q2

REPORT INFORMATION
  Report Type: 
  Country: None (occurrence: None)
  Receive Date: 20120524
  Receipt Date: 20120516
  Transmission Date: 20120825
  Serious: Yes (Disabling)
  Sender: FDA-Public Use
  Company Number: US-MERCK-1202USA03893

PATIENT
  Age: 56 Year
  Sex: Female

DRUGS (1)
  1. FOSAMAX [Suspect]
     Indication: OSTEOPOROSIS
     Route: 048
     Dates: start: 20040401, end: 20080101

REACTIONS (14)
  - ORAL FIBROMA [None]
  - SCAR [None]
  - JAW DISORDER [None]
  - DEVICE FAILURE [None]
  - TOOTH INFECTION [None]
  - ORAL DISORDER [None]
  - GINGIVITIS [None]
  - OSTEOMYELITIS [None]
  - OSTEONECROSIS OF JAW [None]
  - ORAL PAIN [None]
  - PYOGENIC GRANULOMA [None]
  - DENTAL CARIES [None]
  - TOOTH DISORDER [None]
  - JAW FRACTURE [None]
